FAERS Safety Report 5308703-1 (Version None)
Quarter: 2007Q2

REPORT INFORMATION
  Report Type: 
  Country: None (occurrence: None)
  Receive Date: 20070426
  Receipt Date: 20070417
  Transmission Date: 20071010
  Serious: Yes (Hospitalization)
  Sender: FDA-Public Use
  Company Number: FR-GLAXOSMITHKLINE-B0467475A

PATIENT
  Age: 35 Year
  Sex: Female
  Weight: 65 kg

DRUGS (7)
  1. ZOPHREN [Suspect]
     Dosage: 1AMP CYCLIC
     Route: 065
     Dates: start: 20060915, end: 20061006
  2. SOLUPRED [Suspect]
     Route: 048
     Dates: start: 20060915, end: 20061006
  3. FARMORUBICINE [Suspect]
     Dosage: 130MG CYCLIC
     Route: 065
     Dates: start: 20060915, end: 20061006
  4. ANAUSIN METOCLOPRAMIDE [Suspect]
     Dosage: 1TAB PER DAY
     Route: 048
     Dates: start: 20060915, end: 20061006
  5. ADVIL [Suspect]
     Route: 065
     Dates: start: 20061014, end: 20061016
  6. TAXOTERE [Suspect]
     Dosage: 130MG CYCLIC
     Route: 065
     Dates: start: 20060915, end: 20061006
  7. NEULASTA [Concomitant]
     Route: 065

REACTIONS (5)
  - BODY TEMPERATURE INCREASED [None]
  - CHOLESTASIS [None]
  - FATIGUE [None]
  - HEPATOCELLULAR DAMAGE [None]
  - NASOPHARYNGITIS [None]
